FAERS Safety Report 7880590-7 (Version None)
Quarter: 2011Q4

REPORT INFORMATION
  Report Type: 
  Country: None (occurrence: None)
  Receive Date: 20111101
  Receipt Date: 20101008
  Transmission Date: 20120403
  Serious: No
  Sender: FDA-Public Use
  Company Number: US-BAYER-201036439NA

PATIENT
  Sex: Male

DRUGS (4)
  1. LEVITRA [Suspect]
     Dosage: 10 MG, UNK
     Route: 048
     Dates: start: 20100101
  2. METOPROLOL TARTRATE [Concomitant]
  3. LEVITRA [Suspect]
     Indication: ERECTILE DYSFUNCTION
     Dosage: 20 MG, UNK
     Route: 048
  4. METHADONE HCL [Concomitant]

REACTIONS (1)
  - ERECTILE DYSFUNCTION [None]
